FAERS Safety Report 14405448 (Version 2)
Quarter: 2018Q1

REPORT INFORMATION
  Report Type: Spontaneous
  Country: FR (occurrence: FR)
  Receive Date: 20180118
  Receipt Date: 20180125
  Transmission Date: 20180509
  Serious: Yes (Death)
  Sender: FDA-Public Use
  Company Number: FR-MYLANLABS-2018M1004330

PATIENT
  Age: 36 Year
  Sex: Male

DRUGS (13)
  1. BASILIXIMAB [Concomitant]
     Active Substance: BASILIXIMAB
     Indication: IMMUNOSUPPRESSION
     Dosage: 20 MG, UNK
     Route: 042
  2. PIPERACILLIN [Concomitant]
     Active Substance: PIPERACILLIN
     Indication: ANTIBIOTIC THERAPY
     Dosage: UNK
  3. SOLU-MEDROL [Concomitant]
     Active Substance: METHYLPREDNISOLONE SODIUM SUCCINATE
     Indication: IMMUNOSUPPRESSION
     Dosage: 360 MG, UNK
  4. VANCOMYCIN [Concomitant]
     Active Substance: VANCOMYCIN
     Indication: ANTIBIOTIC THERAPY
     Dosage: UNK
  5. CASPOFUNGIN [Suspect]
     Active Substance: CASPOFUNGIN
     Dosage: 70 MG, DAILY (LOADING DOSE)
  6. CYCLOSPORINE. [Concomitant]
     Active Substance: CYCLOSPORINE
     Indication: IMMUNOSUPPRESSION
     Dosage: UNK
  7. FLUCONAZOLE. [Concomitant]
     Active Substance: FLUCONAZOLE
     Indication: CANDIDA INFECTION
     Dosage: 200 MG, UNK
     Route: 042
  8. VORICONAZOLE. [Suspect]
     Active Substance: VORICONAZOLE
     Indication: ANTIFUNGAL TREATMENT
     Dosage: 8 MG/KG, QD
     Route: 042
  9. CASPOFUNGIN [Suspect]
     Active Substance: CASPOFUNGIN
     Indication: ANTIFUNGAL TREATMENT
     Dosage: 50 MG, DAILY
  10. TAZOBACTAM [Concomitant]
     Active Substance: TAZOBACTAM
     Indication: ANTIBIOTIC THERAPY
     Dosage: UNK
  11. VORICONAZOLE. [Suspect]
     Active Substance: VORICONAZOLE
     Dosage: 12 MG/KG, UNK
     Route: 042
  12. SOLU-MEDROL [Concomitant]
     Active Substance: METHYLPREDNISOLONE SODIUM SUCCINATE
     Dosage: 10 MG/KG, UNK
  13. TOBRAMYCIN. [Concomitant]
     Active Substance: TOBRAMYCIN
     Indication: ANTIBIOTIC THERAPY
     Dosage: UNK

REACTIONS (1)
  - Drug ineffective [Fatal]
